FAERS Safety Report 18007295 (Version 1)
Quarter: 2020Q3

REPORT INFORMATION
  Report Type: Spontaneous
  Country: US (occurrence: US)
  Receive Date: 20200710
  Receipt Date: 20200710
  Transmission Date: 20201103
  Serious: No
  Sender: FDA-Public Use
  Company Number: US-VERTEX PHARMACEUTICALS-2020-011015

PATIENT
  Sex: Female
  Weight: 50 kg

DRUGS (1)
  1. TRIKAFTA [Suspect]
     Active Substance: ELEXACAFTOR\IVACAFTOR\TEZACAFTOR
     Indication: CYSTIC FIBROSIS
     Dosage: 2 ORANGE TABS (100 MG ELEXA/ 50 MG TEZA/ 75 MG IVA)AM; 1 BLUE TAB (150MG IVA) PM
     Route: 048
     Dates: start: 20200222

REACTIONS (3)
  - Dizziness [Unknown]
  - Hunger [Unknown]
  - Dehydration [Unknown]

NARRATIVE: CASE EVENT DATE: 2020
